FAERS Safety Report 5406860-X (Version None)
Quarter: 2007Q3

REPORT INFORMATION
  Report Type: 
  Country: None (occurrence: None)
  Receive Date: 20070807
  Receipt Date: 20070724
  Transmission Date: 20080115
  Serious: Yes (Hospitalization)
  Sender: FDA-Public Use
  Company Number: BE-ELI_LILLY_AND_COMPANY-BE200707002137

PATIENT
  Age: 20 Year
  Sex: Male

DRUGS (1)
  1. STRATTERA [Suspect]
     Indication: PSYCHOMOTOR HYPERACTIVITY
     Dosage: 60 MG, DAILY (1/D)
     Route: 048
     Dates: start: 20070523, end: 20070706

REACTIONS (1)
  - TACHYCARDIA [None]
